FAERS Safety Report 19767390 (Version 1)
Quarter: 2021Q3

REPORT INFORMATION
  Report Type: Spontaneous
  Country: US (occurrence: US)
  Receive Date: 20210830
  Receipt Date: 20210830
  Transmission Date: 20211014
  Serious: Yes (Disabling, Other)
  Sender: FDA-Public Use
  Company Number: None

PATIENT
  Age: 92 Year
  Sex: Female
  Weight: 64.35 kg

DRUGS (16)
  1. CELEBREX [Concomitant]
     Active Substance: CELECOXIB
  2. GABAPENTIN 100MG [Concomitant]
     Active Substance: GABAPENTIN
  3. ASA 81MG [Concomitant]
     Active Substance: ASPIRIN
  4. PRAVACHOL [Concomitant]
     Active Substance: PRAVASTATIN SODIUM
  5. XANAX 25MG [Concomitant]
  6. HYDRALAZINE 10MG [Concomitant]
     Active Substance: HYDRALAZINE HYDROCHLORIDE
  7. TYLENOL [Concomitant]
     Active Substance: ACETAMINOPHEN
  8. FIBER 1 [Concomitant]
  9. VITAMIN D3 [Concomitant]
     Active Substance: CHOLECALCIFEROL
  10. PROBIOTIC [Concomitant]
     Active Substance: PROBIOTICS NOS
  11. RANOLAZINE EXTENDED RELEASE TABLETS [Suspect]
     Active Substance: RANOLAZINE
     Indication: CORONARY ARTERY DISEASE
     Dosage: ?          QUANTITY:60 TABLET(S);?
     Route: 048
     Dates: start: 20210616, end: 20210807
  12. LASIX [Concomitant]
     Active Substance: FUROSEMIDE
  13. LOMOTIL 2.5MG [Concomitant]
  14. PROTONIX [Concomitant]
     Active Substance: PANTOPRAZOLE SODIUM
  15. TOPROL XL 12.5 [Concomitant]
  16. CALCIUM [Concomitant]
     Active Substance: CALCIUM

REACTIONS (3)
  - Renal impairment [None]
  - Laboratory test abnormal [None]
  - Blood potassium increased [None]

NARRATIVE: CASE EVENT DATE: 20210806
